FAERS Safety Report 9511380 (Version 1)
Quarter: 2013Q3

REPORT INFORMATION
  Report Type: Spontaneous
  Country: US (occurrence: None)
  Receive Date: 20130909
  Receipt Date: 20130909
  Transmission Date: 20140515
  Serious: Yes (Life-Threatening, Hospitalization, Disabling, Other)
  Sender: FDA-Public Use
  Company Number: None

PATIENT
  Age: 81 Year
  Sex: Male
  Weight: 81.65 kg

DRUGS (1)
  1. RITUXAN [Suspect]
     Indication: B-CELL LYMPHOMA
     Dosage: INTO A VEIN
     Route: 042

REACTIONS (7)
  - Pyrexia [None]
  - Chills [None]
  - Malaise [None]
  - Decreased appetite [None]
  - Fatigue [None]
  - Dialysis [None]
  - Renal impairment [None]
